FAERS Safety Report 7235665-2 (Version None)
Quarter: 2011Q1

REPORT INFORMATION
  Report Type: 
  Country: None (occurrence: None)
  Receive Date: 20110120
  Receipt Date: 20101118
  Transmission Date: 20110831
  Serious: No
  Sender: FDA-Public Use
  Company Number: US-BAYER-2010-005966

PATIENT
  Sex: Male
  Weight: 93 kg

DRUGS (4)
  1. TRAMADOL HCL [Concomitant]
  2. ALEVE (CAPLET) [Suspect]
     Indication: ARTHRITIS
     Dosage: 3 DF, UNK
     Route: 048
  3. ALEVE (CAPLET) [Suspect]
     Dosage: 3 DF, UNK
  4. HYDROCODONE [Concomitant]

REACTIONS (2)
  - DRUG INEFFECTIVE [None]
  - NO ADVERSE EVENT [None]
